FAERS Safety Report 8450214-9 (Version None)
Quarter: 2012Q2

REPORT INFORMATION
  Report Type: 
  Country: None (occurrence: None)
  Receive Date: 20120613
  Receipt Date: 20120531
  Transmission Date: 20120825
  Serious: Yes (Other)
  Sender: FDA-Public Use
  Company Number: 217713

PATIENT
  Age: 61 Year
  Sex: Female

DRUGS (7)
  1. PANTOPRAZOL ^ACTAVIS^ (PANTOPRAZOLE SODIUM) [Concomitant]
  2. INNOHEP [Suspect]
     Indication: THROMBOSIS PROPHYLAXIS
     Dosage: DOSE: 3500 IE DAILY, STRENGTH: 10,000 ANTI-XA IE/ML, SUBCUTANEOUS
     Route: 058
     Dates: start: 20120507
  3. PINEX (PARACETAMOL) [Concomitant]
  4. INNOHEP [Suspect]
  5. IBUPROFEN [Concomitant]
  6. LEVOTHYROXINE SODIUM [Concomitant]
  7. ZOLPIDEM TARTRAT (ZOLPIDEM TARTRATE) [Concomitant]

REACTIONS (3)
  - PRODUCT QUALITY ISSUE [None]
  - DRUG INEFFECTIVE [None]
  - PULMONARY EMBOLISM [None]
